FAERS Safety Report 16852277 (Version 2)
Quarter: 2019Q4

REPORT INFORMATION
  Report Type: Report from Study
  Country: US (occurrence: US)
  Receive Date: 20190925
  Receipt Date: 20191029
  Transmission Date: 20200122
  Serious: Yes (Hospitalization)
  Sender: FDA-Public Use
  Company Number: US-ACTELION-A-US2019-195365

PATIENT
  Age: 73 Year
  Sex: Female
  Weight: 78.46 kg

DRUGS (15)
  1. COREG [Concomitant]
     Active Substance: CARVEDILOL
  2. PRAVACHOL [Concomitant]
     Active Substance: PRAVASTATIN SODIUM
  3. IRON [Concomitant]
     Active Substance: IRON
  4. OPSUMIT [Suspect]
     Active Substance: MACITENTAN
     Dosage: 10 MG, QD
     Route: 048
     Dates: start: 20190815, end: 20190822
  5. ADEMPAS [Concomitant]
     Active Substance: RIOCIGUAT
     Dosage: UNK
     Dates: start: 20190809
  6. VITAMIN B [Concomitant]
     Active Substance: VITAMIN B
  7. OPSUMIT [Suspect]
     Active Substance: MACITENTAN
     Indication: PULMONARY ARTERIAL HYPERTENSION
     Dosage: 10 MG. QD
     Route: 048
     Dates: start: 20190828
  8. LASIX [Concomitant]
     Active Substance: FUROSEMIDE
  9. NORVASC [Concomitant]
     Active Substance: AMLODIPINE BESYLATE
  10. FLONASE [Concomitant]
     Active Substance: FLUTICASONE PROPIONATE
  11. PROTONIX [Concomitant]
     Active Substance: PANTOPRAZOLE SODIUM
  12. OXYGEN. [Concomitant]
     Active Substance: OXYGEN
  13. OXYBUTYNIN. [Concomitant]
     Active Substance: OXYBUTYNIN CHLORIDE
  14. CELEXA [Concomitant]
     Active Substance: CITALOPRAM HYDROBROMIDE
  15. GLUCOSAMINE + CHONDROITIN [Concomitant]

REACTIONS (9)
  - Pulmonary veno-occlusive disease [Recovered/Resolved]
  - Fluid retention [Recovered/Resolved]
  - Swelling [Recovered/Resolved]
  - Pulmonary hypertension [Unknown]
  - Condition aggravated [Recovered/Resolved]
  - Oxygen consumption increased [Recovered/Resolved]
  - Cough [Recovered/Resolved]
  - Dyspnoea [Recovered/Resolved]
  - Weight increased [Recovered/Resolved]

NARRATIVE: CASE EVENT DATE: 20190820
